FAERS Safety Report 7085840-5 (Version None)
Quarter: 2010Q4

REPORT INFORMATION
  Report Type: 
  Country: None (occurrence: None)
  Receive Date: 20101105
  Receipt Date: 20101028
  Transmission Date: 20110411
  Serious: Yes (Hospitalization)
  Sender: FDA-Public Use
  Company Number: IT-ABBOTT-10P-083-0681966-00

PATIENT
  Sex: Female

DRUGS (2)
  1. MACLADIN TM TABLETS [Suspect]
     Indication: PYREXIA
     Route: 042
     Dates: start: 20100129, end: 20100129
  2. AUGMENTIN '125' [Suspect]
     Indication: PYREXIA
     Route: 048
     Dates: start: 20100125, end: 20100129

REACTIONS (3)
  - DYSPNOEA [None]
  - LUNG CONSOLIDATION [None]
  - PAIN IN EXTREMITY [None]
